FAERS Safety Report 5623962-3 (Version None)
Quarter: 2008Q1

REPORT INFORMATION
  Report Type: 
  Country: None (occurrence: None)
  Receive Date: 20080122
  Receipt Date: 20080107
  Transmission Date: 20080703
  Serious: Yes (Hospitalization, Other)
  Sender: FDA-Public Use
  Company Number: AEUSA200800003

PATIENT
  Age: 48 Year
  Sex: Female
  Weight: 83.9154 kg

DRUGS (16)
  1. GAMUNEX [Suspect]
     Indication: MULTIPLE SCLEROSIS
     Dosage: 20 GM; QOW; IV
     Route: 042
     Dates: start: 20050101, end: 20080101
  2. GAMUNEX [Suspect]
  3. GAMUNEX [Concomitant]
  4. GAMUNEX [Suspect]
  5. GAMUNEX [Suspect]
  6. GAMUNEX [Suspect]
  7. GAMUNEX [Suspect]
  8. LIPITOR [Concomitant]
  9. ESTRADIOL [Concomitant]
  10. PROVIGIL [Concomitant]
  11. VITAMINS [Concomitant]
  12. VITAMIN D [Concomitant]
  13. CALCIUM [Concomitant]
  14. REBIF [Concomitant]
  15. BENADRYL [Concomitant]
  16. LASIX [Concomitant]

REACTIONS (6)
  - BLOOD PRESSURE INCREASED [None]
  - BRADYCARDIA [None]
  - CARDIAC FLUTTER [None]
  - INFUSION RELATED REACTION [None]
  - SYNCOPE [None]
  - VENTRICULAR EXTRASYSTOLES [None]
